FAERS Safety Report 24868327 (Version 1)
Quarter: 2025Q1

REPORT INFORMATION
  Report Type: Spontaneous
  Country: US (occurrence: US)
  Receive Date: 20250121
  Receipt Date: 20250121
  Transmission Date: 20250408
  Serious: Yes (Hospitalization)
  Sender: MYLAN
  Company Number: US-MYLANLABS-2025M1002704

PATIENT
  Age: 44 Year
  Sex: Female

DRUGS (2)
  1. HEPARIN [Suspect]
     Active Substance: HEPARIN SODIUM
     Indication: Device related thrombosis
     Dosage: UNK UNK, QD,  A TOTAL OF 6 DAYS OF TREATMENT, INTRAVENOUS INFUSION
     Route: 042
  2. ALTEPLASE [Suspect]
     Active Substance: ALTEPLASE
     Indication: Device related thrombosis
     Dosage: 25 MILLIGRAM, QD, 25MG OVER 6 HOURS DAILY; TOTAL 6 DAYS OF TREATMENT,  INTRAVENOUS INFUSION
     Route: 042

REACTIONS (5)
  - Haemorrhage [Recovering/Resolving]
  - Haemorrhagic ovarian cyst [Recovering/Resolving]
  - Ovarian cyst ruptured [Recovering/Resolving]
  - Haemoperitoneum [Recovering/Resolving]
  - Cerebellar haemorrhage [Recovering/Resolving]
